FAERS Safety Report 16332684 (Version 5)
Quarter: 2019Q4

REPORT INFORMATION
  Report Type: Spontaneous
  Country: US (occurrence: US)
  Receive Date: 20190520
  Receipt Date: 20191121
  Transmission Date: 20200122
  Serious: No
  Sender: FDA-Public Use
  Company Number: US-PFIZER INC-2019212830

PATIENT
  Age: 59 Year
  Sex: Female

DRUGS (3)
  1. XELJANZ XR [Suspect]
     Active Substance: TOFACITINIB CITRATE
     Indication: RHEUMATOID ARTHRITIS
     Dosage: 11 MG, UNK
     Dates: start: 20190415, end: 201904
  2. XELJANZ XR [Suspect]
     Active Substance: TOFACITINIB CITRATE
     Indication: SJOGREN^S SYNDROME
     Dosage: UNK
     Dates: start: 20190423, end: 2019
  3. XELJANZ XR [Suspect]
     Active Substance: TOFACITINIB CITRATE
     Indication: ALOPECIA
     Dosage: 11 MG, 1X/DAY
     Route: 048
     Dates: start: 20190508, end: 20190520

REACTIONS (13)
  - Blister [Unknown]
  - Cough [Unknown]
  - Breast tenderness [Unknown]
  - Crying [Unknown]
  - Dry mouth [Unknown]
  - Hyperglycaemia [Unknown]
  - Oral candidiasis [Unknown]
  - Candida infection [Unknown]
  - Weight increased [Unknown]
  - Vulvovaginal candidiasis [Unknown]
  - Blood pressure increased [Unknown]
  - Fatigue [Unknown]
  - Dyspnoea [Unknown]

NARRATIVE: CASE EVENT DATE: 2019
